FAERS Safety Report 18471165 (Version 1)
Quarter: 2020Q4

REPORT INFORMATION
  Report Type: Spontaneous
  Country: US (occurrence: US)
  Receive Date: 20201105
  Receipt Date: 20201105
  Transmission Date: 20210114
  Serious: Yes (Life-Threatening, Hospitalization)
  Sender: FDA-Public Use
  Company Number: US-009507513-2011USA001801

PATIENT
  Age: 58 Year
  Sex: Female
  Weight: 65.9 kg

DRUGS (6)
  1. PRINIVIL [Suspect]
     Active Substance: LISINOPRIL
     Indication: PRODUCT USED FOR UNKNOWN INDICATION
     Dosage: 40 MG, QD
     Route: 048
     Dates: start: 20151123, end: 20171103
  2. AFINITOR [Suspect]
     Active Substance: EVEROLIMUS
     Indication: INVASIVE BREAST CARCINOMA
     Dosage: CODE NOT BROKEN
     Route: 048
     Dates: start: 20170829
  3. PLACEBO [Suspect]
     Active Substance: UNSPECIFIED INGREDIENT
     Indication: INVASIVE BREAST CARCINOMA
     Dosage: CODE NOT BROKEN
     Route: 048
     Dates: start: 20170829
  4. ANASTROZOLE. [Suspect]
     Active Substance: ANASTROZOLE
     Indication: INVASIVE BREAST CARCINOMA
     Dosage: 67 MG, UNK
     Route: 048
     Dates: start: 20170829
  5. BACTRIM [Concomitant]
     Active Substance: SULFAMETHOXAZOLE\TRIMETHOPRIM
     Indication: PRODUCT USED FOR UNKNOWN INDICATION
     Dosage: UNK
     Route: 065
  6. LEVOFLOXACIN. [Concomitant]
     Active Substance: LEVOFLOXACIN
     Indication: PRODUCT USED FOR UNKNOWN INDICATION
     Dosage: UNK
     Route: 065

REACTIONS (1)
  - Angioedema [Recovered/Resolved]

NARRATIVE: CASE EVENT DATE: 20171103
